FAERS Safety Report 12245394 (Version 1)
Quarter: 2016Q2

REPORT INFORMATION
  Report Type: Spontaneous
  Country: US (occurrence: None)
  Receive Date: 20160406
  Receipt Date: 20160406
  Transmission Date: 20160815
  Serious: Yes (Other)
  Sender: FDA-Public Use
  Company Number: None

PATIENT
  Age: 69 Year
  Sex: Female

DRUGS (7)
  1. CIPRO [Concomitant]
     Active Substance: CIPROFLOXACIN HYDROCHLORIDE
  2. MONTELUKAST [Concomitant]
     Active Substance: MONTELUKAST SODIUM
  3. VENTOLIN [Concomitant]
     Active Substance: ALBUTEROL SULFATE
  4. NAPROXEN. [Concomitant]
     Active Substance: NAPROXEN
  5. BENZONATATE, 100 MG ASCEND [Suspect]
     Active Substance: BENZONATATE
     Indication: COUGH
     Dosage: 20 CAPSULE(S) AS NEEDED TAKEN BY MOUTH
     Route: 048
  6. HCTZ [Concomitant]
     Active Substance: HYDROCHLOROTHIAZIDE
  7. ATENOLOL. [Concomitant]
     Active Substance: ATENOLOL

REACTIONS (4)
  - Chest pain [None]
  - Insomnia [None]
  - Myalgia [None]
  - Tremor [None]

NARRATIVE: CASE EVENT DATE: 20160310
